FAERS Safety Report 23410016 (Version 1)
Quarter: 2024Q1

REPORT INFORMATION
  Report Type: Spontaneous
  Country: US (occurrence: US)
  Receive Date: 20240117
  Receipt Date: 20240117
  Transmission Date: 20240410
  Serious: Yes (Hospitalization, Other)
  Sender: FDA-Public Use
  Company Number: US-SANDOZ-SDZ2024US004026

PATIENT
  Sex: Male

DRUGS (1)
  1. LINEZOLID [Suspect]
     Active Substance: LINEZOLID
     Indication: Product used for unknown indication
     Route: 065

REACTIONS (3)
  - COVID-19 [Unknown]
  - Mycobacterium abscessus infection [Unknown]
  - Disease recurrence [Unknown]
